FAERS Safety Report 5104177-4 (Version None)
Quarter: 2006Q3

REPORT INFORMATION
  Report Type: 
  Country: None (occurrence: None)
  Receive Date: 20060911
  Receipt Date: 20060825
  Transmission Date: 20061208
  Serious: Yes (Congenital Anomaly, Other)
  Sender: FDA-Public Use
  Company Number: 2006RR-03432

PATIENT
  Age: 16 Year
  Sex: Female

DRUGS (1)
  1. ISOTRETINOIN (ISOTRETINOIN) UNKNOWN [Suspect]
     Dosage: 60 MG, QD

REACTIONS (3)
  - DRUG EXPOSURE DURING PREGNANCY [None]
  - LABOUR INDUCTION [None]
  - PREGNANCY [None]
